FAERS Safety Report 15330378 (Version 1)
Quarter: 2018Q3

REPORT INFORMATION
  Report Type: Spontaneous
  Country: US (occurrence: US)
  Receive Date: 20180829
  Receipt Date: 20180829
  Transmission Date: 20181010
  Serious: Yes (Death, Other)
  Sender: FDA-Public Use
  Company Number: US-SANIK-2018SA233084AA

PATIENT
  Age: 64 Year
  Sex: Male

DRUGS (12)
  1. NIVOLUMAB BMS [Suspect]
     Active Substance: NIVOLUMAB
     Indication: LUNG NEOPLASM MALIGNANT
     Dosage: 240 MG, QOW
     Route: 042
     Dates: start: 20180524, end: 20180524
  2. AMIODARONE [Concomitant]
     Active Substance: AMIODARONE
  3. NAPROXEN. [Concomitant]
     Active Substance: NAPROXEN
  4. KEPPRA [Concomitant]
     Active Substance: LEVETIRACETAM
  5. DIGOXIN. [Concomitant]
     Active Substance: DIGOXIN
  6. VITAMIN D [Concomitant]
     Active Substance: CHOLECALCIFEROL
  7. OMEPRAZOLE. [Concomitant]
     Active Substance: OMEPRAZOLE
  8. PLAVIX [Suspect]
     Active Substance: CLOPIDOGREL BISULFATE
  9. DILAUDID [Concomitant]
     Active Substance: HYDROMORPHONE HYDROCHLORIDE
  10. FISH OIL [Concomitant]
     Active Substance: FISH OIL
  11. PAXIL [PIROXICAM] [Concomitant]
  12. DURAGESIC [FENTANYL] [Concomitant]

REACTIONS (4)
  - Death [Fatal]
  - Metastases to central nervous system [Unknown]
  - Rash [Unknown]
  - Dizziness [Unknown]
